FAERS Safety Report 9096723 (Version 1)
Quarter: 2013Q1

REPORT INFORMATION
  Report Type: Spontaneous
  Country: US (occurrence: US)
  Receive Date: 20130211
  Receipt Date: 20130211
  Transmission Date: 20140127
  Serious: No
  Sender: FDA-Public Use
  Company Number: US-BAYER-2013-001036

PATIENT
  Sex: Male

DRUGS (1)
  1. CIPRO [Suspect]
     Indication: FOLLICULITIS
     Dosage: 10 %, UNK
     Dates: start: 20121213

REACTIONS (1)
  - Expired drug administered [None]
